FAERS Safety Report 21379781 (Version 18)
Quarter: 2023Q1

REPORT INFORMATION
  Report Type: Report from Study
  Country: NL (occurrence: None)
  Receive Date: 20220927
  Receipt Date: 20230322
  Transmission Date: 20230417
  Serious: Yes (Hospitalization)
  Sender: FDA-Public Use
  Company Number: NL-Eisai Medical Research-EC-2022-124441

PATIENT
  Age: 68 Year
  Sex: Female
  Weight: 60.5 kg

DRUGS (15)
  1. LENVATINIB [Suspect]
     Active Substance: LENVATINIB
     Indication: Bile duct adenocarcinoma
     Route: 048
     Dates: start: 20220913, end: 20220919
  2. LENVATINIB [Suspect]
     Active Substance: LENVATINIB
     Route: 048
     Dates: start: 20221006, end: 20221011
  3. PEMBROLIZUMAB [Suspect]
     Active Substance: PEMBROLIZUMAB
     Indication: Bile duct adenocarcinoma
     Route: 041
     Dates: start: 20220913, end: 20220913
  4. BELZUTIFAN [Suspect]
     Active Substance: BELZUTIFAN
     Indication: Bile duct adenocarcinoma
     Route: 048
     Dates: start: 20220913, end: 20220919
  5. BELZUTIFAN [Suspect]
     Active Substance: BELZUTIFAN
     Route: 048
     Dates: start: 20221006, end: 20221012
  6. PANTOPRAZOLE [Concomitant]
     Active Substance: PANTOPRAZOLE
     Dates: start: 20210204, end: 20221012
  7. FUROSEMIDE [Concomitant]
     Active Substance: FUROSEMIDE
     Dates: start: 20210906
  8. URSODIOL [Concomitant]
     Active Substance: URSODIOL
     Dates: start: 20210906
  9. SPIRONOLACTONE [Concomitant]
     Active Substance: SPIRONOLACTONE
     Dates: start: 20210927
  10. POLYETHYLENE GLYCOL 400 [Concomitant]
     Active Substance: POLYETHYLENE GLYCOL 400
     Dates: start: 20211025
  11. FENTANYL [Concomitant]
     Active Substance: FENTANYL
     Dates: start: 20211202, end: 20221011
  12. ZOLPIDEM [Concomitant]
     Active Substance: ZOLPIDEM TARTRATE
     Dates: start: 20211216
  13. ACETAMINOPHEN [Concomitant]
     Active Substance: ACETAMINOPHEN
     Dates: start: 20220204
  14. PREGABALIN [Concomitant]
     Active Substance: PREGABALIN
     Dates: start: 20220609, end: 20220909
  15. ALUMINUM HYDROXIDE\MAGNESIUM HYDROXIDE [Concomitant]
     Active Substance: ALUMINUM HYDROXIDE\MAGNESIUM HYDROXIDE
     Dates: start: 20220827

REACTIONS (2)
  - Enteritis [Recovering/Resolving]
  - Anaemia [Recovered/Resolved]

NARRATIVE: CASE EVENT DATE: 20220913
